FAERS Safety Report 9077454 (Version 1)
Quarter: 2013Q1

REPORT INFORMATION
  Report Type: Spontaneous
  Country: EC (occurrence: EC)
  Receive Date: 20130130
  Receipt Date: 20130130
  Transmission Date: 20140127
  Serious: Yes (Death)
  Sender: FDA-Public Use
  Company Number: PHHY2013EC008369

PATIENT
  Age: 84 Year
  Sex: Female

DRUGS (1)
  1. EXFORGE [Suspect]
     Dosage: 1 DF, (160 MG VALS AND 10 MG AMLO)
     Route: 048
     Dates: start: 20110914

REACTIONS (2)
  - Cardiac arrest [Fatal]
  - Drug ineffective [Unknown]
